FAERS Safety Report 7073804-7 (Version None)
Quarter: 2010Q4

REPORT INFORMATION
  Report Type: 
  Country: None (occurrence: None)
  Receive Date: 20101021
  Receipt Date: 20101014
  Transmission Date: 20110411
  Serious: Yes (Hospitalization, Other)
  Sender: FDA-Public Use
  Company Number: 2010SP012136

PATIENT
  Age: 31 Year
  Sex: Female
  Weight: 72.5755 kg

DRUGS (2)
  1. NUVARING [Suspect]
     Indication: CONTRACEPTION
     Dates: start: 20080701, end: 20081101
  2. BIRTH CONTROL PILL [Suspect]
     Indication: CONTRACEPTION
     Dates: end: 20080101

REACTIONS (8)
  - ANAEMIA [None]
  - DEEP VEIN THROMBOSIS [None]
  - FLATULENCE [None]
  - GALLBLADDER DISORDER [None]
  - LYMPHADENOPATHY [None]
  - MESENTERIC VEIN THROMBOSIS [None]
  - OVARIAN CYST [None]
  - PANCREATITIS [None]
